FAERS Safety Report 8666468 (Version 2)
Quarter: 2012Q4

REPORT INFORMATION
  Report Type: 
  Country: DE (occurrence: GH)
  Receive Date: 20120716
  Receipt Date: 20120910
  Transmission Date: 20130627
  Serious: Yes (Hospitalization)
  Sender: FDA-Public Use
  Company Number: DE-GLAXOSMITHKLINE-D0076280A

PATIENT
  Age: 20 None
  Sex: Female

DRUGS (1)
  1. MALARONE [Suspect]
     Indication: MALARIA PROPHYLAXIS
     Route: 048
     Dates: start: 201203, end: 201204

REACTIONS (6)
  - Malaria [Unknown]
  - Psychotic disorder [Unknown]
  - Aggression [Unknown]
  - Insomnia [Unknown]
  - Restlessness [Unknown]
  - Drug therapeutic incompatibility [Unknown]
